FAERS Safety Report 4350150-3 (Version None)
Quarter: 2004Q2

REPORT INFORMATION
  Report Type: 
  Country: None (occurrence: None)
  Receive Date: 20040426
  Receipt Date: 20040413
  Transmission Date: 20050107
  Serious: Yes (Other)
  Sender: FDA-Public Use
  Company Number: 2004025247

PATIENT
  Age: 54 Year
  Sex: Male

DRUGS (5)
  1. NELFINAVIR MESILATE (NELFINAVIR MESILATE) [Suspect]
     Indication: RETROVIRAL INFECTION
     Dates: start: 19980101
  2. CIDOFOVIR (CIDOFOVIR) [Suspect]
     Indication: CYTOMEGALOVIRUS CHORIORETINITIS
  3. STAVUDINE (STAVUDINE) [Suspect]
     Indication: RETROVIRAL INFECTION
     Dates: start: 19980101
  4. LAMIVUDINE (LAMIVUDINE) [Suspect]
     Indication: RETROVIRAL INFECTION
     Dates: start: 19980101
  5. GANCICLOVIR SODIUM [Concomitant]

REACTIONS (5)
  - CATARACT SUBCAPSULAR [None]
  - HYPOTONY OF EYE [None]
  - MACULAR OEDEMA [None]
  - UVEITIS [None]
  - VITRITIS [None]
